FAERS Safety Report 23953734 (Version 1)
Quarter: 2024Q2

REPORT INFORMATION
  Report Type: Spontaneous
  Country: US (occurrence: US)
  Receive Date: 20240609
  Receipt Date: 20240609
  Transmission Date: 20240716
  Serious: No
  Sender: FDA-Public Use
  Company Number: US-ELI_LILLY_AND_COMPANY-US202406002926

PATIENT
  Age: 52 Year
  Sex: Female

DRUGS (6)
  1. INSULIN LISPRO [Suspect]
     Active Substance: INSULIN LISPRO
     Indication: Product used for unknown indication
     Dosage: 30 U, EACH MORNING (FOR BREAKFAST)
     Route: 058
     Dates: start: 20240201
  2. INSULIN LISPRO [Suspect]
     Active Substance: INSULIN LISPRO
     Indication: Product used for unknown indication
     Dosage: 30 U, EACH MORNING (FOR BREAKFAST)
     Route: 058
     Dates: start: 20240201
  3. INSULIN LISPRO [Suspect]
     Active Substance: INSULIN LISPRO
     Dosage: 30 U, DAILY (FOR LUNCH)
     Route: 058
     Dates: start: 20240201
  4. INSULIN LISPRO [Suspect]
     Active Substance: INSULIN LISPRO
     Dosage: 30 U, DAILY (FOR LUNCH)
     Route: 058
     Dates: start: 20240201
  5. INSULIN LISPRO [Suspect]
     Active Substance: INSULIN LISPRO
     Dosage: 30 U, EACH EVENING (FOR DINNER)
     Route: 058
     Dates: start: 20240201
  6. INSULIN LISPRO [Suspect]
     Active Substance: INSULIN LISPRO
     Dosage: 30 U, EACH EVENING (FOR DINNER)
     Route: 058
     Dates: start: 20240201

REACTIONS (2)
  - Incorrect dose administered [Unknown]
  - Injection site pain [Unknown]
